FAERS Safety Report 21097483 (Version 1)
Quarter: 2022Q3

REPORT INFORMATION
  Report Type: Spontaneous
  Country: US (occurrence: US)
  Receive Date: 20220719
  Receipt Date: 20220719
  Transmission Date: 20221026
  Serious: No
  Sender: FDA-Public Use
  Company Number: US-GLENMARK PHARMACEUTICALS-2022GMK071007

PATIENT

DRUGS (1)
  1. DESMOPRESSIN ACETATE [Suspect]
     Active Substance: DESMOPRESSIN ACETATE
     Indication: Enuresis
     Dosage: 2 DOSAGE FORM, QW
     Route: 048
     Dates: start: 202202

REACTIONS (4)
  - Inappropriate schedule of product administration [Unknown]
  - Drug ineffective [Unknown]
  - Condition aggravated [Unknown]
  - Enuresis [Unknown]

NARRATIVE: CASE EVENT DATE: 20220201
